FAERS Safety Report 19936539 (Version 1)
Quarter: 2021Q4

REPORT INFORMATION
  Report Type: Spontaneous
  Country: US (occurrence: US)
  Receive Date: 20211008
  Receipt Date: 20211008
  Transmission Date: 20220303
  Serious: No
  Sender: FDA-Public Use
  Company Number: US-SPROUT PHARMACEUTICALS, INC.-2021SP000012

PATIENT
  Age: 43 Year
  Sex: Female
  Weight: 69.46 kg

DRUGS (6)
  1. ADDYI [Suspect]
     Active Substance: FLIBANSERIN
     Indication: Libido decreased
     Route: 048
     Dates: start: 20210108, end: 20210109
  2. LISINOPRIL [Concomitant]
     Active Substance: LISINOPRIL
     Indication: Hypertension
  3. LEVOTHYROXINE [Concomitant]
     Active Substance: LEVOTHYROXINE
     Indication: Hyperthyroidism
  4. ZOLADEX [Concomitant]
     Active Substance: GOSERELIN ACETATE
     Indication: Menopause
  5. PROLIA [Concomitant]
     Active Substance: DENOSUMAB
     Indication: Osteoporosis prophylaxis
  6. AROMASIN [Concomitant]
     Active Substance: EXEMESTANE
     Indication: Menopause

REACTIONS (4)
  - Dizziness [Recovered/Resolved]
  - Feeling abnormal [Recovered/Resolved]
  - Somnolence [Recovered/Resolved]
  - Fatigue [Recovered/Resolved]

NARRATIVE: CASE EVENT DATE: 20210109
